FAERS Safety Report 10409863 (Version 1)
Quarter: 2014Q3

REPORT INFORMATION
  Report Type: Spontaneous
  Country: US (occurrence: US)
  Receive Date: 20140826
  Receipt Date: 20140826
  Transmission Date: 20150326
  Serious: Yes (Hospitalization)
  Sender: FDA-Public Use
  Company Number: US-B.I. PHARMACEUTICALS,INC./RIDGEFIELD-2014-BI-38643BP

PATIENT
  Age: 63 Year
  Sex: Male

DRUGS (9)
  1. FISH OIL [Concomitant]
     Active Substance: FISH OIL
     Dosage: 1 ANZ
     Route: 065
  2. MULTIVITAMIN [Concomitant]
     Active Substance: VITAMINS
     Route: 065
  3. MULTAQ [Concomitant]
     Active Substance: DRONEDARONE
     Dosage: 800 MG
     Route: 048
  4. LIPITOR [Concomitant]
     Active Substance: ATORVASTATIN CALCIUM
     Dosage: 40 MG
     Route: 048
  5. LISINOPRIL. [Concomitant]
     Active Substance: LISINOPRIL
     Dosage: 5 MG
     Route: 048
  6. NITROGLYCERIN. [Concomitant]
     Active Substance: NITROGLYCERIN
     Indication: CHEST PAIN
     Route: 060
  7. VITAMIN D [Concomitant]
     Active Substance: CHOLECALCIFEROL
     Dosage: 1000 MG
     Route: 065
  8. DIGOXIN. [Concomitant]
     Active Substance: DIGOXIN
     Dosage: 0.25 MG
     Route: 048
  9. PRADAXA [Suspect]
     Active Substance: DABIGATRAN ETEXILATE MESYLATE
     Indication: ATRIAL FIBRILLATION
     Dosage: 300 MG
     Route: 048
     Dates: start: 201110, end: 20120108

REACTIONS (2)
  - Gastrointestinal haemorrhage [Unknown]
  - Coagulopathy [Unknown]

NARRATIVE: CASE EVENT DATE: 20120108
